FAERS Safety Report 5091228-9 (Version None)
Quarter: 2006Q3

REPORT INFORMATION
  Report Type: 
  Country: None (occurrence: None)
  Receive Date: 20060824
  Receipt Date: 20060811
  Transmission Date: 20061208
  Serious: Yes (Death, Hospitalization, Other)
  Sender: FDA-Public Use
  Company Number: 2006082942

PATIENT
  Age: 44 Year
  Sex: Female

DRUGS (4)
  1. GEODON [Suspect]
     Indication: SCHIZOPHRENIA
     Dosage: 160 MG (160 MG, 1 IN 1 D),
  2. LEXAPRO [Suspect]
     Indication: DRUG USE FOR UNKNOWN INDICATION
     Dosage: 20 MG (20 MG, 1 IN 1 D), ORAL
     Route: 048
  3. COGENTIN [Suspect]
     Indication: DRUG USE FOR UNKNOWN INDICATION
     Dosage: 2 MG (2 MG, 1 IN 1 D), ORAL
     Route: 048
  4. HALDOL [Suspect]
     Indication: SCHIZOPHRENIA
     Dosage: 150 MG (150 MG, 1 IN 4 WK), INTRAMUSCULAR
     Route: 030

REACTIONS (2)
  - FALL [None]
  - LOSS OF CONSCIOUSNESS [None]
